FAERS Safety Report 10289881 (Version 2)
Quarter: 2014Q3

REPORT INFORMATION
  Report Type: Spontaneous
  Country: IT (occurrence: None)
  Receive Date: 20140703
  Receipt Date: 20140807
  Transmission Date: 20150326
  Serious: Yes (Hospitalization)
  Sender: FDA-Public Use
  Company Number: AUR-APL-2014-06109

PATIENT
  Age: 25 Year
  Sex: Female

DRUGS (2)
  1. FLUCONAZOLE. [Suspect]
     Active Substance: FLUCONAZOLE
     Indication: FUNGAL INFECTION
     Route: 048
     Dates: start: 20140511, end: 20140515
  2. MYCOSTATIN [Suspect]
     Active Substance: NYSTATIN
     Indication: FUNGAL INFECTION
     Route: 048
     Dates: start: 20140511, end: 20140514

REACTIONS (2)
  - Tongue oedema [None]
  - Palatal oedema [None]

NARRATIVE: CASE EVENT DATE: 20140514
